APPROVED DRUG PRODUCT: AMOXICILLIN AND CLAVULANATE POTASSIUM
Active Ingredient: AMOXICILLIN; CLAVULANATE POTASSIUM
Strength: 200MG/5ML;EQ 28.5MG BASE/5ML
Dosage Form/Route: FOR SUSPENSION;ORAL
Application: A065098 | Product #001 | TE Code: AB
Applicant: SANDOZ INC
Approved: Dec 16, 2002 | RLD: No | RS: No | Type: RX